FAERS Safety Report 7088322 (Version 2)
Quarter: 2015Q1

REPORT INFORMATION
  Report Type: Spontaneous
  Country: US (occurrence: None)
  Receive Date: 20090813
  Receipt Date: 20150323
  Transmission Date: 20150721
  Serious: Yes (Other)
  Sender: FDA-Public Use
  Company Number: 2009S1006563

PATIENT
  Sex: Female

DRUGS (2)
  1. PHOSPHO-SODA [Suspect]
     Active Substance: SODIUM PHOSPHATE, DIBASIC\SODIUM PHOSPHATE, MONOBASIC
     Indication: COLONOSCOPY
     Dosage: PO
     Route: 048
     Dates: start: 20070124, end: 20070124
  2. FLEET [Suspect]
     Active Substance: BISACODYL\GLYCERIN\MINERAL OIL\SODIUM PHOSPHATE, DIBASIC\SODIUM PHOSPHATE, MONOBASIC
     Route: 054

REACTIONS (13)
  - Hyperparathyroidism [None]
  - Hyperkalaemia [None]
  - Escherichia test positive [None]
  - Metabolic acidosis [None]
  - Nephrogenic anaemia [None]
  - Pyuria [None]
  - Acute phosphate nephropathy [None]
  - Hypertension [None]
  - Renal failure [None]
  - Bundle branch block left [None]
  - Arthropathy [None]
  - Dysgeusia [None]
  - Food craving [None]

NARRATIVE: CASE EVENT DATE: 20070125
